FAERS Safety Report 22226390 (Version 2)
Quarter: 2023Q2

REPORT INFORMATION
  Report Type: Report from Study
  Country: CN (occurrence: None)
  Receive Date: 20230419
  Receipt Date: 20230510
  Transmission Date: 20230722
  Serious: Yes (Hospitalization)
  Sender: FDA-Public Use
  Company Number: CN-ROCHE-3330762

PATIENT
  Age: 64 Year
  Sex: Male
  Weight: 79 kg

DRUGS (18)
  1. BEVACIZUMAB [Suspect]
     Active Substance: BEVACIZUMAB
     Indication: Non-small cell lung cancer
     Route: 041
     Dates: start: 20221010, end: 20221010
  2. BEVACIZUMAB [Suspect]
     Active Substance: BEVACIZUMAB
     Dosage: 100 MG (4 ML)/VIAL
     Route: 041
     Dates: start: 20221111, end: 20221111
  3. BEVACIZUMAB [Suspect]
     Active Substance: BEVACIZUMAB
     Dosage: 100 MG (4 ML)/VIAL
     Route: 041
     Dates: start: 20221228, end: 20221228
  4. BEVACIZUMAB [Suspect]
     Active Substance: BEVACIZUMAB
     Dosage: 100 MG (4 ML)/VIAL
     Route: 041
     Dates: start: 20230118, end: 20230118
  5. BEVACIZUMAB [Suspect]
     Active Substance: BEVACIZUMAB
     Dosage: 100 MG (4 ML)/VIAL
     Route: 041
     Dates: start: 20230211, end: 20230211
  6. BEVACIZUMAB [Suspect]
     Active Substance: BEVACIZUMAB
     Dosage: 100 MG (4 ML)/VIAL
     Route: 041
     Dates: start: 20230306, end: 20230306
  7. CARBOPLATIN [Suspect]
     Active Substance: CARBOPLATIN
     Indication: Non-small cell lung cancer
     Dosage: 10 ML: 100 MG
     Route: 041
     Dates: start: 20221010, end: 20221010
  8. CARBOPLATIN [Suspect]
     Active Substance: CARBOPLATIN
     Dosage: 10 ML: 100 MG
     Route: 041
     Dates: start: 20221109, end: 20221109
  9. CARBOPLATIN [Suspect]
     Active Substance: CARBOPLATIN
     Dosage: 10 ML: 100 MG
     Route: 041
     Dates: start: 20221228, end: 20221228
  10. CARBOPLATIN [Suspect]
     Active Substance: CARBOPLATIN
     Dosage: 10 ML: 100 MG
     Route: 041
     Dates: start: 20230118, end: 20230118
  11. CARBOPLATIN [Suspect]
     Active Substance: CARBOPLATIN
     Dosage: 10 ML: 100 MG
     Route: 041
     Dates: start: 20230211, end: 20230211
  12. CARBOPLATIN [Suspect]
     Active Substance: CARBOPLATIN
     Dosage: 10 ML: 100 MG
     Route: 041
     Dates: start: 20230306, end: 20230306
  13. PACLITAXEL [Suspect]
     Active Substance: PACLITAXEL
     Indication: Non-small cell lung cancer
     Dosage: 5 ML: 30 MG
     Route: 041
     Dates: start: 20221010, end: 20221010
  14. PACLITAXEL [Suspect]
     Active Substance: PACLITAXEL
     Dosage: 5 ML: 30 MG
     Route: 041
     Dates: start: 20221109, end: 20221109
  15. PACLITAXEL [Suspect]
     Active Substance: PACLITAXEL
     Dosage: 5 ML: 30 MG
     Route: 041
     Dates: start: 20221228, end: 20221228
  16. PACLITAXEL [Suspect]
     Active Substance: PACLITAXEL
     Dosage: 5 ML: 30 MG
     Route: 041
     Dates: start: 20230118, end: 20230118
  17. PACLITAXEL [Suspect]
     Active Substance: PACLITAXEL
     Dosage: 5 ML: 30 MG
     Route: 041
     Dates: start: 20230211, end: 20230211
  18. PACLITAXEL [Suspect]
     Active Substance: PACLITAXEL
     Dosage: 5 ML: 30 MG
     Route: 041
     Dates: start: 20230306, end: 20230306

REACTIONS (2)
  - White blood cell count decreased [Unknown]
  - Pyrexia [Unknown]
